FAERS Safety Report 21247759 (Version 1)
Quarter: 2022Q3

REPORT INFORMATION
  Report Type: Spontaneous
  Country: US (occurrence: None)
  Receive Date: 20220824
  Receipt Date: 20220824
  Transmission Date: 20221026
  Serious: No
  Sender: FDA-Public Use
  Company Number: US-Emmaus Medical, Inc.-EMM202206-000097

PATIENT
  Age: 5 Year
  Sex: Male
  Weight: 14.515 kg

DRUGS (2)
  1. ENDARI [Suspect]
     Active Substance: GLUTAMINE
     Indication: Sickle cell disease
     Dosage: 5 GM
     Route: 048
     Dates: start: 20220329, end: 20220521
  2. ENDARI [Suspect]
     Active Substance: GLUTAMINE
     Dosage: 5 GM
     Route: 048
     Dates: start: 20220530

REACTIONS (2)
  - Psychomotor hyperactivity [Recovered/Resolved]
  - Product dose omission issue [Unknown]

NARRATIVE: CASE EVENT DATE: 20220521
